FAERS Safety Report 16367580 (Version 3)
Quarter: 2019Q2

REPORT INFORMATION
  Report Type: Spontaneous
  Country: US (occurrence: US)
  Receive Date: 20190529
  Receipt Date: 20190624
  Transmission Date: 20190711
  Serious: No
  Sender: FDA-Public Use
  Company Number: US-PFIZER INC-2019223396

PATIENT
  Age: 75 Year
  Sex: Female
  Weight: 49 kg

DRUGS (1)
  1. IBRANCE [Suspect]
     Active Substance: PALBOCICLIB
     Dosage: UNK

REACTIONS (2)
  - Balance disorder [Unknown]
  - Night sweats [Not Recovered/Not Resolved]
